FAERS Safety Report 10470267 (Version 1)
Quarter: 2014Q3

REPORT INFORMATION
  Report Type: Spontaneous
  Country: JP (occurrence: JP)
  Receive Date: 20140923
  Receipt Date: 20140923
  Transmission Date: 20150326
  Serious: Yes (Other)
  Sender: FDA-Public Use
  Company Number: JP-WATSON-2014-20287

PATIENT
  Age: 50 Year
  Sex: Female
  Weight: 40 kg

DRUGS (10)
  1. PROPOFOL. [Concomitant]
     Active Substance: PROPOFOL
     Dosage: 3 MG/KG, Q1H
     Route: 042
  2. PROPOFOL. [Concomitant]
     Active Substance: PROPOFOL
     Dosage: 4 MG, Q1H
     Route: 042
  3. OMEPRAZOLE. [Concomitant]
     Active Substance: OMEPRAZOLE
     Indication: PULMONARY FIBROSIS
     Dosage: 20 MG, UNK
     Route: 065
  4. PIRFENIDONE [Concomitant]
     Active Substance: PIRFENIDONE
     Indication: PULMONARY FIBROSIS
     Dosage: 1800 MG, UNK
     Route: 065
  5. PENTAZOCINE (UNKNOWN) [Suspect]
     Active Substance: PENTAZOCINE
     Indication: PRURITUS ALLERGIC
     Dosage: 7.5 MG, SINGLE
     Route: 042
  6. PROPOFOL. [Concomitant]
     Active Substance: PROPOFOL
     Indication: PRODUCT USED FOR UNKNOWN INDICATION
     Dosage: 25 MG, SINGLE
     Route: 042
  7. PROPOFOL. [Concomitant]
     Active Substance: PROPOFOL
     Dosage: 15 MG, SINGLE
     Route: 042
  8. PREDNISOLONE. [Concomitant]
     Active Substance: PREDNISOLONE
     Indication: PULMONARY FIBROSIS
     Dosage: 10 MG, UNK
     Route: 065
  9. FENTANYL (UNKNOWN) [Suspect]
     Active Substance: FENTANYL
     Indication: LOCAL ANAESTHESIA
     Dosage: 25 ?G, SINGLE
     Route: 037
  10. BUPIVACAINE [Concomitant]
     Active Substance: BUPIVACAINE
     Indication: LOCAL ANAESTHESIA
     Dosage: 3.5 ML, SINGLE
     Route: 037

REACTIONS (2)
  - Pruritus allergic [Recovered/Resolved]
  - Off label use [Recovered/Resolved]
